FAERS Safety Report 9089024 (Version 2)
Quarter: 2014Q2

REPORT INFORMATION
  Report Type: Spontaneous
  Country: US (occurrence: US)
  Receive Date: 20130131
  Receipt Date: 20140530
  Transmission Date: 20141212
  Serious: Yes (Hospitalization, Other)
  Sender: FDA-Public Use
  Company Number: PHHY2013US007031

PATIENT
  Age: 38 Year
  Sex: Female

DRUGS (6)
  1. AZITHROMYCIN [Suspect]
     Indication: SINUSITIS
     Dosage: 500 MG
  2. AZITHROMYCIN [Suspect]
     Indication: LOWER RESPIRATORY TRACT INFECTION
     Dosage: 250 MG
  3. FOLATE [Concomitant]
     Dosage: 1 MG, UNK
  4. MULTIVITAMINS [Concomitant]
     Dosage: 1 DF, UNK
  5. FUROSEMIDE [Concomitant]
     Dosage: 40 MG, UNK
  6. SPIRONOLACTONE [Concomitant]
     Dosage: 100 MG, UNK

REACTIONS (17)
  - Hepatotoxicity [Recovered/Resolved]
  - Ocular icterus [Recovered/Resolved]
  - Decreased appetite [Recovered/Resolved]
  - Ascites [Recovered/Resolved]
  - Abdominal pain upper [Recovered/Resolved]
  - Diarrhoea [Recovered/Resolved]
  - Nausea [Recovered/Resolved]
  - Chromaturia [Recovered/Resolved]
  - Faeces discoloured [Recovered/Resolved]
  - Jaundice [Recovered/Resolved]
  - Abdominal distension [Recovered/Resolved]
  - Transaminases increased [Recovered/Resolved]
  - Hepatomegaly [Recovered/Resolved]
  - Splenomegaly [Recovered/Resolved]
  - Portal hypertension [Recovered/Resolved]
  - Hepatic cirrhosis [Recovered/Resolved]
  - Abdominal tenderness [Recovered/Resolved]
